FAERS Safety Report 7036824-4 (Version None)
Quarter: 2010Q4

REPORT INFORMATION
  Report Type: 
  Country: None (occurrence: None)
  Receive Date: 20101011
  Receipt Date: 20101004
  Transmission Date: 20110411
  Serious: Yes (Hospitalization, Other)
  Sender: FDA-Public Use
  Company Number: US-ELI_LILLY_AND_COMPANY-US201002003456

PATIENT
  Sex: Female
  Weight: 86.621 kg

DRUGS (4)
  1. BYETTA [Suspect]
     Dosage: UNK, UNKNOWN
     Route: 065
     Dates: start: 20090116, end: 20090201
  2. JANUMET [Concomitant]
     Indication: DIABETES MELLITUS
  3. ZETIA [Concomitant]
     Indication: HYPERLIPIDAEMIA
  4. SYNTHROID [Concomitant]

REACTIONS (1)
  - PANCREATITIS ACUTE [None]
